FAERS Safety Report 8949451 (Version 1)
Quarter: 2012Q4

REPORT INFORMATION
  Report Type: Report from Study
  Country: US (occurrence: US)
  Receive Date: 20121206
  Receipt Date: 20121206
  Transmission Date: 20130627
  Serious: Yes (Other)
  Sender: FDA-Public Use
  Company Number: US-BRISTOL-MYERS SQUIBB COMPANY-17162082

PATIENT
  Age: 42 Year
  Sex: Female
  Weight: 69 kg

DRUGS (1)
  1. IPILIMUMAB [Suspect]
     Indication: MALIGNANT MELANOMA
     Dosage: 10mg/kg Over 90mins, Q3 Weeks X 4 doses, Course no:6
Last dose:11Oct2012
     Route: 042
     Dates: start: 20120209

REACTIONS (1)
  - Suicidal ideation [Not Recovered/Not Resolved]
